FAERS Safety Report 5192600-9 (Version None)
Quarter: 2006Q4

REPORT INFORMATION
  Report Type: 
  Country: None (occurrence: None)
  Receive Date: 20061220
  Receipt Date: 20061127
  Transmission Date: 20070319
  Serious: Yes (Death, Other)
  Sender: FDA-Public Use
  Company Number: 2006146677

PATIENT
  Age: 72 Year
  Sex: Male

DRUGS (1)
  1. BEXTRA [Suspect]
     Indication: ARTHRITIS
     Dosage: ORAL
     Route: 048
     Dates: start: 20030301, end: 20040701

REACTIONS (2)
  - CARDIAC ARREST [None]
  - SUDDEN DEATH [None]
